FAERS Safety Report 19512158 (Version 1)
Quarter: 2021Q3

REPORT INFORMATION
  Report Type: Spontaneous
  Country: DE (occurrence: DE)
  Receive Date: 20210709
  Receipt Date: 20210709
  Transmission Date: 20211014
  Serious: Yes (Hospitalization)
  Sender: FDA-Public Use
  Company Number: DE-SA-2021SA221987

PATIENT
  Age: 24 Year
  Sex: Male
  Weight: 64 kg

DRUGS (8)
  1. ISONIAZID. [Suspect]
     Active Substance: ISONIAZID
     Dosage: 300 MG (200 MG, 1.5?0?0?0, TABLETS)
     Route: 048
  2. PANTOPRAZOLE [Concomitant]
     Active Substance: PANTOPRAZOLE
     Dosage: 20 MG (20 MG, 1?0?0?0, SUSTAINED?RELEASE TABLETS)
     Route: 048
  3. PYRAZINAMIDE. [Suspect]
     Active Substance: PYRAZINAMIDE
     Dosage: 1500 MG (500 MG, 3?0?0?0, TABLETS)
     Route: 048
  4. ENOXAPARIN [Concomitant]
     Active Substance: ENOXAPARIN
     Dosage: 2000 IU, 0?0?1?0, SOLUTION FOR INJECTION / INFUSION
     Route: 058
  5. METAMIZOL [Concomitant]
     Active Substance: METAMIZOLE SODIUM
     Dosage: 500 MG, PRN (500 MG, AS NEEDED, DROPS)
     Route: 048
  6. RIFAMPICIN [Suspect]
     Active Substance: RIFAMPIN
     Dosage: 600 MG (600 MG, 1?0?0?0, TABLETS)
     Route: 048
  7. ETHAMBUTOL [Suspect]
     Active Substance: ETHAMBUTOL HYDROCHLORIDE
     Dosage: 1000 MG (400 MG, 2.5?0?0?0, TABLETS)
     Route: 048
  8. IBUPROFEN. [Concomitant]
     Active Substance: IBUPROFEN
     Dosage: 600 MG, PRN
     Route: 048

REACTIONS (4)
  - Pyrexia [Unknown]
  - Abscess [Unknown]
  - Condition aggravated [Unknown]
  - Swelling [Unknown]

NARRATIVE: CASE EVENT DATE: 202011
